FAERS Safety Report 12183994 (Version 1)
Quarter: 2016Q1

REPORT INFORMATION
  Report Type: Spontaneous
  Country: US (occurrence: US)
  Receive Date: 20160316
  Receipt Date: 20160316
  Transmission Date: 20160526
  Serious: Yes (Other)
  Sender: FDA-Public Use
  Company Number: US-GLAXOSMITHKLINE-US2016GSK036928

PATIENT
  Sex: Male

DRUGS (14)
  1. WELLBUTRIN XL [Suspect]
     Active Substance: BUPROPION HYDROCHLORIDE
     Indication: DEPRESSION
     Dosage: 300 MG, QD
  2. XYREM [Suspect]
     Active Substance: SODIUM OXYBATE
     Dosage: 4.5 GRAMS TWICE NIGHTLY
     Dates: start: 201503
  3. LIDODERM TRANSDERMAL PATCH [Concomitant]
     Dosage: UNK
     Dates: start: 20150806, end: 20160101
  4. CLONAZEPAM TABLET [Concomitant]
  5. TEMAZEPAM. [Concomitant]
     Active Substance: TEMAZEPAM
  6. ERGOCALCIFEROL. [Concomitant]
     Active Substance: ERGOCALCIFEROL
  7. XYREM [Suspect]
     Active Substance: SODIUM OXYBATE
     Indication: CATAPLEXY
     Dosage: 3.75 GRAMS TWICE NIGHTLY
     Dates: start: 201207
  8. FINASTERIDE TABLET [Concomitant]
  9. XYREM [Suspect]
     Active Substance: SODIUM OXYBATE
     Indication: NARCOLEPSY
     Dosage: 3 GRAMS TWICE NIGHTLY
     Route: 048
     Dates: start: 201206
  10. ADDERALL [Concomitant]
     Active Substance: AMPHETAMINE ASPARTATE\AMPHETAMINE SULFATE\DEXTROAMPHETAMINE SACCHARATE\DEXTROAMPHETAMINE SULFATE
  11. WELLBUTRIN XL [Suspect]
     Active Substance: BUPROPION HYDROCHLORIDE
     Dosage: 450 MG, UNK
  12. AMBIEN [Concomitant]
     Active Substance: ZOLPIDEM TARTRATE
  13. ANDRODERM TRANSDERMAL PATCH [Concomitant]
  14. LISDEXAMFETAMINE MESILATE [Concomitant]
     Active Substance: LISDEXAMFETAMINE DIMESYLATE

REACTIONS (2)
  - Depression [Unknown]
  - Therapeutic response decreased [Unknown]
